FAERS Safety Report 24333367 (Version 1)
Quarter: 2024Q3

REPORT INFORMATION
  Report Type: Spontaneous
  Country: US (occurrence: None)
  Receive Date: 20240917
  Receipt Date: 20240917
  Transmission Date: 20241017
  Serious: Yes (Other)
  Sender: Public
  Company Number: None

PATIENT
  Age: 44 Year
  Sex: Female

DRUGS (1)
  1. FERROUS GLUCONATE [Suspect]
     Active Substance: FERROUS GLUCONATE
     Dosage: OTHER FREQUENCY : 1ST INFUSION;?
     Route: 040
     Dates: start: 202408, end: 20240830

REACTIONS (4)
  - Chest discomfort [None]
  - Blood pressure decreased [None]
  - Swelling [None]
  - Hypoaesthesia oral [None]

NARRATIVE: CASE EVENT DATE: 20240829
